FAERS Safety Report 10578300 (Version 1)
Quarter: 2014Q4

REPORT INFORMATION
  Report Type: Spontaneous
  Country: US (occurrence: None)
  Receive Date: 20141111
  Receipt Date: 20141111
  Transmission Date: 20150529
  Serious: No
  Sender: FDA-Public Use
  Company Number: None

PATIENT
  Age: 31 Year
  Sex: Female

DRUGS (1)
  1. PROGESTERONE/DHEA IN VERSABASE [Suspect]
     Active Substance: PRASTERONE\PROGESTERONE
     Indication: HORMONE REPLACEMENT THERAPY
     Dosage: 10/2.5MG/ML CREAM 2XDAY
     Dates: start: 20140902, end: 20141022

REACTIONS (3)
  - Rash [None]
  - Urticaria [None]
  - Reaction to drug excipients [None]

NARRATIVE: CASE EVENT DATE: 20141022
